FAERS Safety Report 6187210-0 (Version None)
Quarter: 2009Q2

REPORT INFORMATION
  Report Type: 
  Country: None (occurrence: None)
  Receive Date: 20090512
  Receipt Date: 20090501
  Transmission Date: 20091009
  Serious: Yes (Other)
  Sender: FDA-Public Use
  Company Number: PHEH2009US04348

PATIENT
  Sex: Female

DRUGS (7)
  1. TASIGNA [Suspect]
     Indication: CHRONIC MYELOID LEUKAEMIA
     Dosage: 800 MG, QD
     Route: 048
     Dates: start: 20071101, end: 20080201
  2. TASIGNA [Suspect]
     Dosage: 200 MG, QD
     Route: 048
     Dates: start: 20080201
  3. TRAZODONE HCL [Concomitant]
     Dosage: 100 MG, QHS
     Route: 048
  4. MORPHINE SULFATE [Concomitant]
     Dosage: 30 MG, PRN
     Route: 048
  5. WELLBUTRIN [Concomitant]
     Dosage: 300 MG, QD
     Route: 048
  6. MOTRIN [Concomitant]
     Dosage: UNK
     Route: 048
  7. CENESTIN [Concomitant]
     Dosage: 1.25 MG, QD
     Route: 048

REACTIONS (19)
  - ANXIETY [None]
  - APHASIA [None]
  - BACK PAIN [None]
  - COGNITIVE DISORDER [None]
  - CONFUSIONAL STATE [None]
  - DEPRESSION [None]
  - DIARRHOEA [None]
  - DISTURBANCE IN ATTENTION [None]
  - DYSARTHRIA [None]
  - FATIGUE [None]
  - HEADACHE [None]
  - IRRITABILITY [None]
  - MALFORMATION VENOUS [None]
  - MEMORY IMPAIRMENT [None]
  - NAUSEA [None]
  - RASH [None]
  - STRESS [None]
  - STRESS AT WORK [None]
  - VERTIGO [None]
